FAERS Safety Report 12894871 (Version 2)
Quarter: 2016Q4

REPORT INFORMATION
  Report Type: Spontaneous
  Country: US (occurrence: US)
  Receive Date: 20161028
  Receipt Date: 20161118
  Transmission Date: 20170207
  Serious: Yes (Other)
  Sender: FDA-Public Use
  Company Number: ALCN2016US007325

PATIENT
  Age: 79 Year
  Sex: Female
  Weight: 68.27 kg

DRUGS (5)
  1. VIGAMOX [Concomitant]
     Active Substance: MOXIFLOXACIN HYDROCHLORIDE
     Indication: PRODUCT USED FOR UNKNOWN INDICATION
     Route: 065
  2. BSS [Suspect]
     Active Substance: CALCIUM CHLORIDE\MAGNESIUM CHLORIDE\POTASSIUM CHLORIDE\SODIUM ACETATE\SODIUM CHLORIDE\SODIUM CITRATE
     Indication: PRODUCT USED FOR UNKNOWN INDICATION
     Route: 065
  3. EPINEPHRINE. [Suspect]
     Active Substance: EPINEPHRINE
     Indication: PRODUCT USED FOR UNKNOWN INDICATION
     Route: 065
  4. PREDNISONE. [Concomitant]
     Active Substance: PREDNISONE
     Indication: PRODUCT USED FOR UNKNOWN INDICATION
     Route: 065
  5. PROLENSA [Concomitant]
     Active Substance: BROMFENAC SODIUM
     Route: 047

REACTIONS (4)
  - Intraocular pressure increased [Unknown]
  - Hypopyon [Unknown]
  - Toxic anterior segment syndrome [Not Recovered/Not Resolved]
  - Corneal oedema [Unknown]

NARRATIVE: CASE EVENT DATE: 20161012
